FAERS Safety Report 7550208 (Version 9)
Quarter: 2015Q3

REPORT INFORMATION
  Report Type: Spontaneous
  Country: US (occurrence: US)
  Receive Date: 20100823
  Receipt Date: 20150814
  Transmission Date: 20151125
  Serious: Yes (Disabling, Other)
  Sender: FDA-Public Use
  Company Number: US-PFIZER INC-2010102173

PATIENT
  Age: 64 Year
  Sex: Female
  Weight: 64 kg

DRUGS (7)
  1. LIPITOR [Suspect]
     Active Substance: ATORVASTATIN CALCIUM
     Dosage: 80 (UNSPECIFIED UNITS) (AT BEDTIME), 1X/DAY
     Route: 048
     Dates: start: 20070821
  2. LIPITOR [Suspect]
     Active Substance: ATORVASTATIN CALCIUM
     Dosage: UNK, 2X/DAY
     Route: 048
     Dates: start: 20070906
  3. LIPITOR [Suspect]
     Active Substance: ATORVASTATIN CALCIUM
     Indication: BLOOD CHOLESTEROL INCREASED
     Dosage: 20 MG, UNK
     Dates: start: 200210, end: 200211
  4. LIPITOR [Suspect]
     Active Substance: ATORVASTATIN CALCIUM
     Dosage: UNK
     Route: 048
     Dates: end: 2002
  5. BENICAR [Concomitant]
     Active Substance: OLMESARTAN MEDOXOMIL
     Indication: BLOOD PRESSURE ABNORMAL
     Dosage: 20 MG, 2X/DAY
     Route: 048
  6. LIPITOR [Suspect]
     Active Substance: ATORVASTATIN CALCIUM
     Dosage: 20 MG, DAILY
     Dates: start: 200211, end: 200212
  7. BENICAR [Concomitant]
     Active Substance: OLMESARTAN MEDOXOMIL
     Dosage: 20 MG, 1X/DAY
     Route: 048

REACTIONS (29)
  - Liver injury [Not Recovered/Not Resolved]
  - Nasopharyngitis [Not Recovered/Not Resolved]
  - Walking disability [Not Recovered/Not Resolved]
  - Fall [Not Recovered/Not Resolved]
  - Hypotension [Not Recovered/Not Resolved]
  - Abasia [Unknown]
  - Wrist fracture [Unknown]
  - Pain [Not Recovered/Not Resolved]
  - Fear of falling [Not Recovered/Not Resolved]
  - Fatigue [Unknown]
  - Pain in extremity [Unknown]
  - Nerve injury [Not Recovered/Not Resolved]
  - Visual acuity reduced [Not Recovered/Not Resolved]
  - Feeling abnormal [Unknown]
  - Asthenia [Unknown]
  - Dyspnoea exertional [Unknown]
  - Muscle injury [Not Recovered/Not Resolved]
  - Arthropathy [Unknown]
  - Limb injury [Not Recovered/Not Resolved]
  - Activities of daily living impaired [Unknown]
  - Muscular weakness [Not Recovered/Not Resolved]
  - Tooth fracture [Recovered/Resolved]
  - Back disorder [Unknown]
  - Peripheral swelling [Not Recovered/Not Resolved]
  - Muscular weakness [Unknown]
  - Face injury [Unknown]
  - Loose tooth [Unknown]
  - Joint injury [Unknown]
  - Drug hypersensitivity [Unknown]

NARRATIVE: CASE EVENT DATE: 2002
